FAERS Safety Report 8837581 (Version 1)
Quarter: 2012Q4

REPORT INFORMATION
  Report Type: 
  Country: US (occurrence: US)
  Receive Date: 20121012
  Receipt Date: 20121012
  Transmission Date: 20130627
  Serious: Yes (Other)
  Sender: FDA-Public Use
  Company Number: US-ROCHE-1136355

PATIENT
  Sex: Male
  Weight: 26 kg

DRUGS (6)
  1. NUTROPIN AQ [Suspect]
     Indication: BODY HEIGHT BELOW NORMAL
     Dosage: 9 mg/kg/wk
     Route: 058
     Dates: start: 1994
  2. NUTROPIN AQ [Suspect]
     Indication: RENAL FAILURE CHRONIC
     Dosage: 0.26 ml
     Route: 065
  3. NIFEREX [Concomitant]
     Route: 048
  4. EPO [Concomitant]
     Route: 050
  5. NIFEDIPINE [Concomitant]
     Route: 048
  6. ENALAPRIL [Concomitant]
     Route: 048

REACTIONS (2)
  - Transplant failure [Unknown]
  - Infection [Unknown]
